FAERS Safety Report 7319655-7 (Version None)
Quarter: 2011Q1

REPORT INFORMATION
  Report Type: 
  Country: None (occurrence: None)
  Receive Date: 20110228
  Receipt Date: 20100626
  Transmission Date: 20110831
  Serious: No
  Sender: FDA-Public Use
  Company Number: A0868809A

PATIENT
  Sex: Female

DRUGS (3)
  1. LAMOTRIGINE [Suspect]
  2. LAMICTAL [Suspect]
  3. UNSPECIFIED MEDICATIONS [Suspect]

REACTIONS (3)
  - TREATMENT NONCOMPLIANCE [None]
  - UNDERDOSE [None]
  - DRUG INEFFECTIVE [None]
